FAERS Safety Report 4751790-X (Version None)
Quarter: 2005Q3

REPORT INFORMATION
  Report Type: 
  Country: None (occurrence: None)
  Receive Date: 20050818
  Receipt Date: 20031229
  Transmission Date: 20060218
  Serious: Yes (Other)
  Sender: FDA-Public Use
  Company Number: 2004222767US

PATIENT
  Sex: Female

DRUGS (1)
  1. DELTASONE [Suspect]
     Indication: RHEUMATOID ARTHRITIS

REACTIONS (1)
  - IMPAIRED HEALING [None]
